FAERS Safety Report 6875783-1 (Version None)
Quarter: 2010Q3

REPORT INFORMATION
  Report Type: 
  Country: None (occurrence: None)
  Receive Date: 20100727
  Receipt Date: 20070730
  Transmission Date: 20110219
  Serious: Yes (Hospitalization, Other)
  Sender: FDA-Public Use
  Company Number: US-PFIZER INC-2006121134

PATIENT
  Sex: Female
  Weight: 156.9 kg

DRUGS (6)
  1. CELEBREX [Suspect]
     Indication: PAIN
     Dates: start: 19990101
  2. CELEBREX [Suspect]
     Indication: INFLAMMATION
  3. VIOXX [Suspect]
     Indication: PAIN
     Dates: start: 19990520
  4. VIOXX [Suspect]
     Indication: INFLAMMATION
  5. NAPRONTAG FLEX [Concomitant]
     Indication: MYALGIA
     Dates: start: 20000101
  6. LIPITOR [Concomitant]
     Indication: BLOOD CHOLESTEROL INCREASED
     Dates: start: 19920101

REACTIONS (1)
  - MYOCARDIAL INFARCTION [None]
